FAERS Safety Report 5323100-0 (Version None)
Quarter: 2007Q2

REPORT INFORMATION
  Report Type: 
  Country: None (occurrence: None)
  Receive Date: 20070507
  Receipt Date: 20070501
  Transmission Date: 20071010
  Serious: Yes (Hospitalization)
  Sender: FDA-Public Use
  Company Number: 2007SP007571

PATIENT
  Age: 25 Year
  Sex: Female

DRUGS (1)
  1. AERIUS (DESLORATIDINE) (DESLORATIDINE) [Suspect]
     Indication: DERMATITIS
     Dosage: 5 MG, QD; PO
     Route: 048
     Dates: start: 20070409, end: 20070409

REACTIONS (1)
  - DERMATITIS ALLERGIC [None]
